FAERS Safety Report 10217404 (Version 1)
Quarter: 2014Q2

REPORT INFORMATION
  Report Type: Spontaneous
  Country: US (occurrence: US)
  Receive Date: 20140604
  Receipt Date: 20140604
  Transmission Date: 20141212
  Serious: No
  Sender: FDA-Public Use
  Company Number: US-009507513-1405USA014000

PATIENT
  Sex: Female

DRUGS (2)
  1. PEGINTRON [Suspect]
     Dosage: UNK
  2. PEGINTRON [Suspect]
     Dosage: UNK

REACTIONS (5)
  - Drug dose omission [Unknown]
  - Underdose [Unknown]
  - Product container issue [Unknown]
  - Product container issue [Unknown]
  - No adverse event [Unknown]
